FAERS Safety Report 23237589 (Version 2)
Quarter: 2025Q2

REPORT INFORMATION
  Report Type: Spontaneous
  Country: US (occurrence: US)
  Receive Date: 20231128
  Receipt Date: 20250515
  Transmission Date: 20250717
  Serious: Yes (Other)
  Sender: CSL BEHRING
  Company Number: US-BEH-2023165781

PATIENT
  Sex: Female

DRUGS (27)
  1. HIZENTRA [Suspect]
     Active Substance: HUMAN IMMUNOGLOBULIN G
     Indication: Immunodeficiency
     Dosage: 16 GRAM, QW
     Route: 058
     Dates: start: 20230620
  2. TERIFLUNOMIDE [Concomitant]
     Active Substance: TERIFLUNOMIDE
  3. ACETAMINOPHEN [Concomitant]
     Active Substance: ACETAMINOPHEN
  4. ATORVASTATIN [Concomitant]
     Active Substance: ATORVASTATIN
  5. AZELASTINE [Concomitant]
     Active Substance: AZELASTINE
  6. AZELASTINE [Concomitant]
     Active Substance: AZELASTINE
  7. CICLOPIROX [Concomitant]
     Active Substance: CICLOPIROX
  8. DALFAMPRIDINE [Concomitant]
     Active Substance: DALFAMPRIDINE
  9. ESTRADIOL [Concomitant]
     Active Substance: ESTRADIOL
  10. FENOFIBRATE [Concomitant]
     Active Substance: FENOFIBRATE
  11. GAMUNEX-C [Concomitant]
     Active Substance: HUMAN IMMUNOGLOBULIN G
  12. HYDROCORT [HYDROCORTISONE] [Concomitant]
  13. HYDROXYZINE [Concomitant]
     Active Substance: HYDROXYZINE HYDROCHLORIDE
  14. MECLIZINE HYDROCHLORIDE [Concomitant]
     Active Substance: MECLIZINE HYDROCHLORIDE
  15. METHYLPREDNISOLONE [Concomitant]
     Active Substance: METHYLPREDNISOLONE
  16. MONTELUKAST [Concomitant]
     Active Substance: MONTELUKAST
  17. MYRBETRIQ [Concomitant]
     Active Substance: MIRABEGRON
  18. OLOPATADINE [Concomitant]
     Active Substance: OLOPATADINE
  19. POTASSIUM CHLORIDE [Concomitant]
     Active Substance: POTASSIUM CHLORIDE
  20. POTASSIUM CITRATE [Concomitant]
     Active Substance: POTASSIUM CITRATE
  21. PREDNISONE [Concomitant]
     Active Substance: PREDNISONE
  22. PREDNISONE [Concomitant]
     Active Substance: PREDNISONE
  23. TOPIRAMATE [Concomitant]
     Active Substance: TOPIRAMATE
  24. TRIAMCINOLONE [Concomitant]
     Active Substance: TRIAMCINOLONE
  25. ASCORBIC ACID [Concomitant]
     Active Substance: ASCORBIC ACID
  26. HYDROCHLOROTHIAZIDE [Concomitant]
     Active Substance: HYDROCHLOROTHIAZIDE
  27. AUBAGIO [Suspect]
     Active Substance: TERIFLUNOMIDE

REACTIONS (6)
  - Multiple sclerosis [Unknown]
  - Fall [Not Recovered/Not Resolved]
  - Mobility decreased [Not Recovered/Not Resolved]
  - Gait inability [Unknown]
  - Mobility decreased [Unknown]
  - Fall [Unknown]
